FAERS Safety Report 14277320 (Version 1)
Quarter: 2017Q4

REPORT INFORMATION
  Report Type: Spontaneous
  Country: US (occurrence: US)
  Receive Date: 20171211
  Receipt Date: 20171211
  Transmission Date: 20180321
  Serious: Yes (Hospitalization, Other)
  Sender: FDA-Public Use
  Company Number: US-OTSUKA-2017_018900

PATIENT
  Age: 36 Year
  Sex: Male

DRUGS (1)
  1. ABILIFY [Suspect]
     Active Substance: ARIPIPRAZOLE
     Indication: AFFECTIVE DISORDER
     Dosage: 1 DF, UNK (1 DF= 5MG, 7MG, 7.5MG, 2.5MG, 2MG AND 4MG)
     Route: 065
     Dates: start: 20110211, end: 201510

REACTIONS (8)
  - Gambling disorder [Unknown]
  - Obsessive-compulsive disorder [Not Recovered/Not Resolved]
  - Emotional distress [Unknown]
  - Mental disorder [Unknown]
  - Brain injury [Unknown]
  - Gambling [Not Recovered/Not Resolved]
  - Injury [Unknown]
  - Product use in unapproved indication [Unknown]

NARRATIVE: CASE EVENT DATE: 20120531
